FAERS Safety Report 4861700-2 (Version None)
Quarter: 2005Q4

REPORT INFORMATION
  Report Type: 
  Country: None (occurrence: None)
  Receive Date: 20051130
  Receipt Date: 20050519
  Transmission Date: 20060501
  Serious: Yes (Other)
  Sender: FDA-Public Use
  Company Number: 2005078179

PATIENT

DRUGS (1)
  1. LINEZOLID SOLUTION, STERILE (LINEZOLID) [Suspect]
     Indication: DIABETIC FOOT

REACTIONS (1)
  - BONE MARROW FAILURE [None]
